FAERS Safety Report 18031530 (Version 11)
Quarter: 2022Q2

REPORT INFORMATION
  Report Type: Spontaneous
  Country: US (occurrence: US)
  Receive Date: 20200716
  Receipt Date: 20220503
  Transmission Date: 20220721
  Serious: No
  Sender: FDA-Public Use
  Company Number: US-PFIZER INC-2020267910

PATIENT
  Age: 76 Year
  Sex: Female
  Weight: 61.23 kg

DRUGS (12)
  1. PREMPRO [Interacting]
     Active Substance: ESTROGENS, CONJUGATED\MEDROXYPROGESTERONE ACETATE
     Indication: Anxiety
     Dosage: 1 DF, 1X/DAY (0.625/2.5MG TABLET IN A BLISTER PACK BY MOUTH ONCE DAILY IN THE MORNING)
     Route: 048
     Dates: start: 20200709
  2. PREMPRO [Interacting]
     Active Substance: ESTROGENS, CONJUGATED\MEDROXYPROGESTERONE ACETATE
     Indication: Sleep disorder
     Dosage: UNK
  3. PREMPRO [Interacting]
     Active Substance: ESTROGENS, CONJUGATED\MEDROXYPROGESTERONE ACETATE
     Indication: Menopause
  4. BENADRYL ALLERGY [Interacting]
     Active Substance: DIPHENHYDRAMINE HYDROCHLORIDE
     Indication: Sleep disorder
     Dosage: 50 MG, ALTERNATE DAY (25MG TAKING TWO TABLETS BY MOUTH EVERY OTHER NIGHT)
     Route: 048
  5. BENADRYL ALLERGY [Interacting]
     Active Substance: DIPHENHYDRAMINE HYDROCHLORIDE
     Indication: Insomnia
  6. MELATONIN [Interacting]
     Active Substance: MELATONIN
     Indication: Sleep disorder
     Dosage: 6 MG, UNK
  7. MELATONIN [Interacting]
     Active Substance: MELATONIN
     Indication: Insomnia
     Dosage: 9 MG, ALTERNATE DAY (3MG FOR EACH PILL BY MOUTH, TAKES SOMETIMES THREE OF THEM EVERY OTHER NIGHT)
     Route: 048
  8. KLONOPIN [Interacting]
     Active Substance: CLONAZEPAM
     Indication: Sleep disorder
     Dosage: 0.5 MG, 3X/DAY
     Route: 048
  9. KLONOPIN [Interacting]
     Active Substance: CLONAZEPAM
     Indication: Anxiety
     Dosage: UNK, 1X/DAY (AT NIGHT)
  10. KLONOPIN [Interacting]
     Active Substance: CLONAZEPAM
     Indication: Insomnia
  11. CLONAZEPAM [Concomitant]
     Active Substance: CLONAZEPAM
     Dosage: 1.5 MG
  12. XANAX [Concomitant]
     Active Substance: ALPRAZOLAM
     Dosage: UNK

REACTIONS (14)
  - Nausea [Not Recovered/Not Resolved]
  - Constipation [Unknown]
  - Vision blurred [Not Recovered/Not Resolved]
  - Weight increased [Unknown]
  - Retching [Unknown]
  - Depression [Not Recovered/Not Resolved]
  - Photosensitivity reaction [Not Recovered/Not Resolved]
  - Drug interaction [Unknown]
  - Urinary incontinence [Unknown]
  - Nervousness [Unknown]
  - Stress [Unknown]
  - Product communication issue [Unknown]
  - Oedema peripheral [Unknown]
  - Peripheral swelling [Unknown]
